FAERS Safety Report 17668818 (Version 2)
Quarter: 2020Q2

REPORT INFORMATION
  Report Type: Spontaneous
  Country: US (occurrence: US)
  Receive Date: 20200415
  Receipt Date: 20200416
  Transmission Date: 20200713
  Serious: No
  Sender: FDA-Public Use
  Company Number: US-VIFOR (INTERNATIONAL) INC.-VIT-2020-05112

PATIENT
  Sex: Female

DRUGS (1)
  1. VELPHORO [Suspect]
     Active Substance: SUCROFERRIC OXYHYDROXIDE
     Indication: CHRONIC KIDNEY DISEASE
     Route: 048

REACTIONS (1)
  - Product taste abnormal [Not Recovered/Not Resolved]
